FAERS Safety Report 8502540-2 (Version None)
Quarter: 2012Q3

REPORT INFORMATION
  Report Type: 
  Country: None (occurrence: None)
  Receive Date: 20120711
  Receipt Date: 20120628
  Transmission Date: 20120928
  Serious: Yes (Hospitalization, Other)
  Sender: FDA-Public Use
  Company Number: IT-ELI_LILLY_AND_COMPANY-IT201001004892

PATIENT
  Sex: Female

DRUGS (3)
  1. CYMBALTA [Suspect]
     Indication: DEPRESSION
     Dosage: 30 MG, DAILY (1/D)
     Route: 048
     Dates: start: 20090502, end: 20090601
  2. CYMBALTA [Suspect]
     Dosage: 60 MG, DAILY (1/D)
     Route: 048
     Dates: start: 20090601, end: 20091016
  3. ALPRAZOLAM [Concomitant]
     Dosage: UNK, UNKNOWN
     Route: 065
     Dates: start: 19900101

REACTIONS (15)
  - TOOTH ABSCESS [None]
  - WEIGHT DECREASED [None]
  - PSYCHOMOTOR HYPERACTIVITY [None]
  - MOOD ALTERED [None]
  - INSOMNIA [None]
  - ANAEMIA HAEMOLYTIC AUTOIMMUNE [None]
  - SPINAL FRACTURE [None]
  - WEIGHT INCREASED [None]
  - DIARRHOEA [None]
  - PAIN [None]
  - FAECES DISCOLOURED [None]
  - OSTEOPOROSIS [None]
  - HYPERSENSITIVITY [None]
  - GASTRITIS EROSIVE [None]
  - BLOOD GLUCOSE ABNORMAL [None]
